FAERS Safety Report 4959331-9 (Version None)
Quarter: 2006Q1

REPORT INFORMATION
  Report Type: 
  Country: None (occurrence: None)
  Receive Date: 20060331
  Receipt Date: 20031216
  Transmission Date: 20060701
  Serious: Yes (Other)
  Sender: FDA-Public Use
  Company Number: GB-JNJFOC-20060305690

PATIENT
  Sex: Male

DRUGS (2)
  1. RISPERDAL [Suspect]
     Indication: DRUG USE FOR UNKNOWN INDICATION
     Dosage: STARTED IN 1999/2000
     Route: 065
  2. CITALOPRAM [Suspect]
     Indication: DEPRESSION
     Dosage: AT ^RECOMMENDED DOSAGE^

REACTIONS (2)
  - LARYNGOSPASM [None]
  - VOCAL CORD PARALYSIS [None]
